FAERS Safety Report 6215891-1 (Version None)
Quarter: 2009Q2

REPORT INFORMATION
  Report Type: 
  Country: None (occurrence: None)
  Receive Date: 20090605
  Receipt Date: 20090601
  Transmission Date: 20091009
  Serious: Yes (Other)
  Sender: FDA-Public Use
  Company Number: US-ROCHE-458424

PATIENT
  Sex: Male
  Weight: 93.4 kg

DRUGS (1)
  1. ACCUTANE [Suspect]
     Indication: ACNE
     Route: 065
     Dates: start: 20000401, end: 20000501

REACTIONS (11)
  - ANGER [None]
  - ANXIETY [None]
  - BIPOLAR DISORDER [None]
  - COLITIS ULCERATIVE [None]
  - COLONIC POLYP [None]
  - DEPRESSED MOOD [None]
  - DRUG TOXICITY [None]
  - EMOTIONAL DISTRESS [None]
  - IMPULSIVE BEHAVIOUR [None]
  - SUICIDAL IDEATION [None]
  - THERAPEUTIC AGENT TOXICITY [None]
